FAERS Safety Report 10399048 (Version 2)
Quarter: 2015Q2

REPORT INFORMATION
  Report Type: Other
  Country: GB (occurrence: GB)
  Receive Date: 20140821
  Receipt Date: 20150422
  Transmission Date: 20150821
  Serious: Yes (Life-Threatening)
  Sender: FDA-Public Use
  Company Number: GB-MYLAN-2014M1001425

PATIENT

DRUGS (5)
  1. SOLIFENACIN [Concomitant]
     Active Substance: SOLIFENACIN
  2. QUETIAPINE [Suspect]
     Active Substance: QUETIAPINE
     Indication: PSYCHOTIC DISORDER
     Dosage: 400 MG, QD (400MG NOCTE)
     Route: 048
     Dates: start: 20140711, end: 20140723
  3. RISPERIDONE. [Concomitant]
     Active Substance: RISPERIDONE
     Dates: start: 20140408, end: 20140708
  4. CERAZETTE [Concomitant]
     Active Substance: DESOGESTREL
  5. SERTRALINE [Concomitant]
     Active Substance: SERTRALINE HYDROCHLORIDE

REACTIONS (1)
  - Pulmonary embolism [Recovering/Resolving]

NARRATIVE: CASE EVENT DATE: 20140723
